FAERS Safety Report 23264748 (Version 2)
Quarter: 2024Q2

REPORT INFORMATION
  Report Type: Spontaneous
  Country: CA (occurrence: CA)
  Receive Date: 20231206
  Receipt Date: 20240620
  Transmission Date: 20240715
  Serious: Yes (Hospitalization)
  Sender: FDA-Public Use
  Company Number: CA-CELLTRION INC.-2023CA023209

PATIENT

DRUGS (5)
  1. YUFLYMA [Suspect]
     Active Substance: ADALIMUMAB-AATY
     Indication: Crohn^s disease
     Dosage: 40 MG, THEN QWEEKLY
     Route: 058
     Dates: start: 20230920
  2. CIPROFLOXACIN [Concomitant]
     Active Substance: CIPROFLOXACIN
     Dosage: 500MG ONE TABLET TWICE A DAY
  3. METRONIDAZOLE [Concomitant]
     Active Substance: METRONIDAZOLE
     Dosage: 500MG ONE CAPSULE TWICE DAILY
  4. CIPROFLOXACIN [Concomitant]
     Active Substance: CIPROFLOXACIN
     Dosage: 500.0 MILLIGRAM
  5. METRONIDAZOLE [Concomitant]
     Active Substance: METRONIDAZOLE
     Dosage: 500.0 MILLIGRAM

REACTIONS (4)
  - Malaise [Recovering/Resolving]
  - Paraesthesia [Recovering/Resolving]
  - Hypoaesthesia [Recovering/Resolving]
  - Intentional product use issue [Recovering/Resolving]
